FAERS Safety Report 10434940 (Version 1)
Quarter: 2014Q3

REPORT INFORMATION
  Report Type: Spontaneous
  Country: US (occurrence: None)
  Receive Date: 20140815
  Receipt Date: 20140815
  Transmission Date: 20150326
  Serious: No
  Sender: FDA-Public Use
  Company Number: 2014TUS004173

PATIENT
  Age: 38 Year
  Sex: Female

DRUGS (6)
  1. TRAMADOL [Concomitant]
     Active Substance: TRAMADOL
  2. UNKNOWN MEDICATION (ALL OTHER THERAPEUTIC PRODUCTS) [Concomitant]
     Active Substance: UNSPECIFIED INGREDIENT
  3. UNKNOWN MEDICATION (ANTIALLERGIC AGENTS, EXCL CORTICOSTEROIDS) [Concomitant]
  4. BRINTELLIX [Suspect]
     Active Substance: VORTIOXETINE HYDROBROMIDE
     Indication: MAJOR DEPRESSION
     Route: 048
  5. UNKNOWN BENZODIAZEPINE (BENZODIAZEPINE DERIVATIVES) [Concomitant]
  6. UNKNOWN NSAID) (NSAID^S) [Concomitant]

REACTIONS (1)
  - Blood pressure increased [None]
